FAERS Safety Report 10048239 (Version 1)
Quarter: 2014Q1

REPORT INFORMATION
  Report Type: Spontaneous
  Country: US (occurrence: US)
  Receive Date: 20140331
  Receipt Date: 20140331
  Transmission Date: 20141002
  Serious: No
  Sender: FDA-Public Use
  Company Number: US-PFIZER INC-2014088213

PATIENT
  Age: 12 Year
  Sex: Female

DRUGS (3)
  1. GENOTROPIN [Suspect]
     Indication: GROWTH HORMONE DEFICIENCY
     Dosage: UNK
     Dates: start: 2014, end: 2014
  2. GENOTROPIN [Suspect]
     Dosage: UNK
     Dates: start: 20140319
  3. VITAMINS [Concomitant]
     Dosage: UNK

REACTIONS (4)
  - Confusional state [Unknown]
  - Somnolence [Unknown]
  - Memory impairment [Unknown]
  - Fatigue [Unknown]
